FAERS Safety Report 11616825 (Version 3)
Quarter: 2016Q3

REPORT INFORMATION
  Report Type: Spontaneous
  Country: US (occurrence: US)
  Receive Date: 20151009
  Receipt Date: 20160803
  Transmission Date: 20161109
  Serious: Yes (Other)
  Sender: FDA-Public Use
  Company Number: US-BAYER-2015-434280

PATIENT
  Age: 29 Year
  Sex: Male
  Weight: 86.16 kg

DRUGS (14)
  1. AVELOX [Suspect]
     Active Substance: MOXIFLOXACIN HYDROCHLORIDE
     Dosage: UNK
     Dates: start: 200706
  2. TESTOSTERONE. [Concomitant]
     Active Substance: TESTOSTERONE
     Indication: BLOOD TESTOSTERONE DECREASED
     Dosage: 5 ML, PER WEEK
  3. LEVAQUIN [Suspect]
     Active Substance: LEVOFLOXACIN
     Indication: DIVERTICULITIS
     Dosage: UNK
     Dates: start: 200706
  4. LEVAQUIN [Suspect]
     Active Substance: LEVOFLOXACIN
     Indication: DIVERTICULITIS
     Dosage: 500 MG, UNK
     Route: 048
     Dates: start: 20080628
  5. CORTISOL [Concomitant]
     Active Substance: HYDROCORTISONE
     Dosage: UNK
     Dates: start: 20110912
  6. LEVAQUIN [Suspect]
     Active Substance: LEVOFLOXACIN
     Indication: DIVERTICULITIS
     Dosage: 500 MG, UNK
     Route: 048
     Dates: start: 20080627
  7. VITAMIN B12 [Concomitant]
     Active Substance: CYANOCOBALAMIN
     Indication: HYPOVITAMINOSIS
     Dosage: 1000 ?G/ML, UNK
     Dates: start: 20120213
  8. FLUCONAZOLE. [Concomitant]
     Active Substance: FLUCONAZOLE
     Dosage: UNK
     Dates: start: 20110912
  9. PREGNENOLONE [Concomitant]
     Active Substance: PREGNENOLONE
     Dosage: UNK
     Dates: start: 20110120
  10. KETEK [Concomitant]
     Active Substance: TELITHROMYCIN
     Dosage: UNK
     Dates: start: 20061014, end: 20061015
  11. MOXIFLOXACIN ORAL [Suspect]
     Active Substance: MOXIFLOXACIN
     Dosage: 500 MG, UNK
     Route: 048
     Dates: start: 20080630
  12. MOTRIN [Concomitant]
     Active Substance: IBUPROFEN
     Indication: PAIN
     Dosage: UNK
     Dates: start: 20070627
  13. LEVAQUIN [Suspect]
     Active Substance: LEVOFLOXACIN
     Indication: DIVERTICULITIS
     Dosage: 500 MG, UNK
     Route: 048
     Dates: start: 20080629
  14. NYSTATIN. [Concomitant]
     Active Substance: NYSTATIN
     Indication: INFECTION
     Dosage: UNK
     Dates: start: 20110912

REACTIONS (10)
  - Mental disorder [None]
  - Pain [None]
  - Musculoskeletal injury [None]
  - Mental disorder [None]
  - Emotional distress [None]
  - Nervous system disorder [None]
  - Skin injury [None]
  - Neuropathy peripheral [None]
  - Injury [None]
  - Cardiovascular disorder [None]

NARRATIVE: CASE EVENT DATE: 200707
